FAERS Safety Report 8436616-5 (Version None)
Quarter: 2012Q2

REPORT INFORMATION
  Report Type: 
  Country: None (occurrence: None)
  Receive Date: 20120614
  Receipt Date: 20120605
  Transmission Date: 20120825
  Serious: Yes (Disabling)
  Sender: FDA-Public Use
  Company Number: US-ASTRAZENECA-2012SE37439

PATIENT
  Age: 49 Year
  Sex: Male

DRUGS (7)
  1. LISINOPRIL [Suspect]
     Route: 048
  2. GEODON [Suspect]
     Dosage: 2 DF WITH DINNER
  3. VISTARIL [Concomitant]
  4. METFORMIN HCL [Concomitant]
  5. PRILOSEC [Suspect]
     Route: 048
  6. SEROQUEL [Suspect]
     Route: 048
  7. TRILEPTAL [Concomitant]

REACTIONS (3)
  - DRUG HYPERSENSITIVITY [None]
  - VERTIGO [None]
  - CEREBROVASCULAR ACCIDENT [None]
